FAERS Safety Report 14400857 (Version 2)
Quarter: 2024Q3

REPORT INFORMATION
  Report Type: Spontaneous
  Country: DE (occurrence: DE)
  Receive Date: 20180117
  Receipt Date: 20240708
  Transmission Date: 20241016
  Serious: Yes (Other)
  Sender: FERRING
  Company Number: None

PATIENT

DRUGS (4)
  1. DESMOPRESSIN [Suspect]
     Active Substance: DESMOPRESSIN
     Indication: Product used for unknown indication
     Dosage: 0.2 MG, UNKNOWN FREQUENCY
     Route: 065
     Dates: start: 2011
  2. DROSPIRENONE AND ETHINYL ESTRADIOL [Suspect]
     Active Substance: DROSPIRENONE\ETHINYL ESTRADIOL
     Indication: Hormonal contraception
     Dosage: UNK
     Route: 048
     Dates: start: 201705, end: 20170621
  3. DROSPIRENONE AND ETHINYL ESTRADIOL [Suspect]
     Active Substance: DROSPIRENONE\ETHINYL ESTRADIOL
     Dosage: UNK
     Route: 048
     Dates: start: 2015, end: 2017
  4. DROSPIRENONE AND ETHINYL ESTRADIOL [Suspect]
     Active Substance: DROSPIRENONE\ETHINYL ESTRADIOL
     Dosage: UNK
     Route: 048
     Dates: start: 2010

REACTIONS (1)
  - Deep vein thrombosis [Unknown]

NARRATIVE: CASE EVENT DATE: 20170620
